FAERS Safety Report 7936626-8 (Version None)
Quarter: 2011Q4

REPORT INFORMATION
  Report Type: 
  Country: None (occurrence: None)
  Receive Date: 20111121
  Receipt Date: 20110802
  Transmission Date: 20120403
  Serious: No
  Sender: FDA-Public Use
  Company Number: 2011029460

PATIENT
  Age: 60 Year
  Sex: Female
  Weight: 87.0906 kg

DRUGS (20)
  1. WELLBUTRIN [Concomitant]
  2. ESTRADIOL [Concomitant]
  3. ANABOLIC STEROID (ANABOLIC STEROID) [Concomitant]
  4. VERAMYST (FLUTICASONE) [Concomitant]
  5. OXYCONTIN [Concomitant]
  6. BUDESONIDE [Concomitant]
  7. LEVOTHYROXINE SODIUM [Concomitant]
  8. GENTAMICIN SULFATE [Concomitant]
  9. NYSTATIN [Concomitant]
  10. BERINERT [Suspect]
     Indication: HEREDITARY ANGIOEDEMA
     Dosage: (20 ML, 500 UNIT/10ML VIAL; 1000 UNITS; 4 ML/MIN. PRN INTRAVENOUS (NOT OTHERWISE SPECIFIED)
     Route: 042
     Dates: start: 20110728, end: 20110728
  11. PROMETHAZINE [Concomitant]
  12. GUAIFENESIN [Concomitant]
  13. VFEND [Concomitant]
  14. DIFLUCAN [Concomitant]
  15. CLONAZEPAM [Concomitant]
  16. DICLOFENAC SODIUM [Concomitant]
  17. PRAVASTATIN [Concomitant]
  18. LEXAPRO [Concomitant]
  19. PERCOCET [Concomitant]
  20. ROBAXIN [Concomitant]

REACTIONS (1)
  - RASH PRURITIC [None]
